FAERS Safety Report 11849333 (Version 1)
Quarter: 2015Q4

REPORT INFORMATION
  Report Type: Spontaneous
  Country: US (occurrence: US)
  Receive Date: 20151218
  Receipt Date: 20151218
  Transmission Date: 20160305
  Serious: Yes (Other)
  Sender: FDA-Public Use
  Company Number: US-SUN PHARMACEUTICAL INDUSTRIES LTD-2015US-108104

PATIENT
  Age: 62 Year
  Sex: Female

DRUGS (9)
  1. TRAMADOL. [Suspect]
     Active Substance: TRAMADOL
     Indication: RESTLESS LEGS SYNDROME
     Dosage: UNK
     Route: 065
  2. ROPINIROLE. [Suspect]
     Active Substance: ROPINIROLE
     Indication: RESTLESS LEGS SYNDROME
     Dosage: UNK
     Route: 065
  3. CLONAZEPAM. [Concomitant]
     Active Substance: CLONAZEPAM
     Indication: RESTLESS LEGS SYNDROME
     Dosage: 0.5 MG, QD
     Route: 065
  4. TRAMADOL. [Suspect]
     Active Substance: TRAMADOL
     Indication: RESTLESS LEGS SYNDROME
     Dosage: UNK
     Route: 065
  5. ROPINIROLE. [Suspect]
     Active Substance: ROPINIROLE
     Indication: RESTLESS LEGS SYNDROME
     Dosage: UNK
     Route: 065
  6. METHADONE [Suspect]
     Active Substance: METHADONE HYDROCHLORIDE
     Indication: RESTLESS LEGS SYNDROME
     Dosage: 15 MG, DAILY
     Route: 065
  7. OXYCODONE [Suspect]
     Active Substance: OXYCODONE
     Indication: RESTLESS LEGS SYNDROME
     Dosage: 10 MG, TID
     Route: 065
  8. TRAMADOL. [Suspect]
     Active Substance: TRAMADOL
     Indication: RESTLESS LEGS SYNDROME
     Dosage: UNK
     Route: 065
  9. METHADONE [Suspect]
     Active Substance: METHADONE HYDROCHLORIDE
     Indication: RESTLESS LEGS SYNDROME
     Dosage: 5 MG NOCTE TWO TO THREE TIMES A WEEK
     Route: 065

REACTIONS (2)
  - Hyperaesthesia [Recovering/Resolving]
  - Condition aggravated [Recovering/Resolving]
